FAERS Safety Report 5485650-6 (Version None)
Quarter: 2007Q4

REPORT INFORMATION
  Report Type: 
  Country: None (occurrence: None)
  Receive Date: 20071011
  Receipt Date: 20070928
  Transmission Date: 20080405
  Serious: Yes (Death)
  Sender: FDA-Public Use
  Company Number: GXKR2007FI08407

PATIENT
  Age: 43 Year
  Sex: Male

DRUGS (1)
  1. DOXEPIN (NGX)(DOXEPIN) UNKNOWN [Suspect]

REACTIONS (7)
  - ANTIPSYCHOTIC DRUG LEVEL ABOVE THERAPEUTIC [None]
  - BRONCHOPNEUMONIA [None]
  - CONTUSION [None]
  - DRUG TOXICITY [None]
  - EXCORIATION [None]
  - HAEMATOMA [None]
  - METABOLIC DISORDER [None]
